FAERS Safety Report 4853288-7 (Version None)
Quarter: 2005Q4

REPORT INFORMATION
  Report Type: 
  Country: None (occurrence: None)
  Receive Date: 20051214
  Receipt Date: 20051208
  Transmission Date: 20060501
  Serious: Yes (Other)
  Sender: FDA-Public Use
  Company Number: US-GLAXOSMITHKLINE-A0585151A

PATIENT
  Age: 15 Month
  Sex: Male

DRUGS (4)
  1. PAXIL [Suspect]
     Indication: DEPRESSION
     Dosage: 10MG PER DAY
     Route: 048
     Dates: start: 20020714, end: 20021001
  2. PROGESTERONE [Concomitant]
  3. ASPIRIN [Concomitant]
  4. VITAMIN AND MINERAL PRENATAL SUPPLEMENT W/ FOLIC ACID CAP [Concomitant]

REACTIONS (4)
  - APLASIA PURE RED CELL [None]
  - ASTHMA [None]
  - DRUG EXPOSURE DURING PREGNANCY [None]
  - RHINITIS ALLERGIC [None]
